FAERS Safety Report 6963967-3 (Version None)
Quarter: 2010Q3

REPORT INFORMATION
  Report Type: 
  Country: None (occurrence: None)
  Receive Date: 20100902
  Receipt Date: 20100902
  Transmission Date: 20110219
  Serious: Yes (Other)
  Sender: FDA-Public Use
  Company Number: None

PATIENT
  Sex: Female
  Weight: 64.8644 kg

DRUGS (1)
  1. LYRICA [Suspect]
     Indication: BACK PAIN
     Dosage: 50 MG 2XDAY
     Dates: start: 20100730, end: 20100819

REACTIONS (4)
  - FLASHBACK [None]
  - INHIBITORY DRUG INTERACTION [None]
  - PANIC ATTACK [None]
  - SUICIDAL IDEATION [None]
